FAERS Safety Report 8829492 (Version 1)
Quarter: 2012Q4

REPORT INFORMATION
  Report Type: 
  Country: US (occurrence: US)
  Receive Date: 20121008
  Receipt Date: 20121008
  Transmission Date: 20130627
  Serious: Yes (Hospitalization)
  Sender: FDA-Public Use
  Company Number: US-ROCHE-1130782

PATIENT
  Sex: Male

DRUGS (2)
  1. RITUXAN [Suspect]
     Indication: IDIOPATHIC THROMBOCYTOPENIC PURPURA
     Route: 065
  2. DECADRON [Concomitant]
     Route: 065

REACTIONS (4)
  - Urinary retention [Unknown]
  - No therapeutic response [Unknown]
  - Asthenia [Unknown]
  - Fatigue [Unknown]
